FAERS Safety Report 9272104 (Version 3)
Quarter: 2013Q2

REPORT INFORMATION
  Report Type: Spontaneous
  Country: US (occurrence: US)
  Receive Date: 20130506
  Receipt Date: 20130514
  Transmission Date: 20140414
  Serious: Yes (Death, Life-Threatening, Hospitalization)
  Sender: FDA-Public Use
  Company Number: US-JNJFOC-20130500811

PATIENT
  Age: 86 Year
  Sex: Female
  Weight: 60.78 kg

DRUGS (16)
  1. XARELTO [Suspect]
     Indication: CEREBROVASCULAR ACCIDENT PROPHYLAXIS
     Route: 048
     Dates: start: 20130122
  2. XARELTO [Suspect]
     Indication: ATRIAL FIBRILLATION
     Route: 048
     Dates: start: 20130122
  3. WARFARIN [Suspect]
     Indication: ATRIAL FIBRILLATION
     Route: 065
  4. ALPRAZOLAM [Concomitant]
     Dosage: AS NEEDED
     Route: 048
  5. LEVOTHYROXINE [Concomitant]
     Route: 048
  6. NEXIUM [Concomitant]
     Dosage: AS NEEDED
     Route: 048
  7. EXELON PATCH [Concomitant]
     Dosage: AS NEEDED
     Route: 065
  8. METOPROLOL SUCCINATE [Concomitant]
     Dosage: AS NEEDED
     Route: 048
  9. NITRO-BID [Concomitant]
     Dosage: AS NEEDED
     Route: 048
  10. DIGOXIN [Concomitant]
     Dosage: AS NEEDED
     Route: 048
  11. PREMARIN [Concomitant]
     Dosage: AS NEEDED
     Route: 048
  12. KCL [Concomitant]
     Dosage: AS NEEDED
     Route: 048
  13. CRESTOR [Concomitant]
     Dosage: AS NEEDED
     Route: 048
  14. AMITRIPTYLINE WITH PERPHENAZINE [Concomitant]
     Dosage: AS NEEDED
     Route: 048
  15. MEMANTINE [Concomitant]
     Dosage: AS NEEDED
     Route: 065
  16. RED YEAST RICE EXTRACT [Concomitant]
     Dosage: AS NEEDED
     Route: 048

REACTIONS (5)
  - Death [Fatal]
  - Fall [Not Recovered/Not Resolved]
  - Subdural haematoma [Not Recovered/Not Resolved]
  - Hemiparesis [Not Recovered/Not Resolved]
  - International normalised ratio increased [Not Recovered/Not Resolved]
